FAERS Safety Report 11253023 (Version 2)
Quarter: 2015Q3

REPORT INFORMATION
  Report Type: Spontaneous
  Country: US (occurrence: None)
  Receive Date: 20150707
  Receipt Date: 20150717
  Transmission Date: 20151125
  Serious: Yes (Other)
  Sender: FDA-Public Use
  Company Number: 2015JUB00195

PATIENT
  Age: 67 Year
  Sex: Female
  Weight: 62.1 kg

DRUGS (4)
  1. PREDNISONE. [Suspect]
     Active Substance: PREDNISONE
     Dates: start: 2015
  2. REVATIO [Concomitant]
     Active Substance: SILDENAFIL CITRATE
  3. REMODULIN [Suspect]
     Active Substance: TREPROSTINIL
     Indication: PULMONARY HYPERTENSION
     Route: 041
     Dates: start: 20150204
  4. LETAIRIS [Concomitant]
     Active Substance: AMBRISENTAN

REACTIONS (9)
  - Renal impairment [None]
  - Malaise [None]
  - Blood glucose increased [None]
  - Laceration [None]
  - Blood glucose decreased [None]
  - Blood glucose abnormal [None]
  - Injection site pain [None]
  - Sinusitis [None]
  - Tendon injury [None]

NARRATIVE: CASE EVENT DATE: 2015
